FAERS Safety Report 8248163-4 (Version None)
Quarter: 2012Q1

REPORT INFORMATION
  Report Type: 
  Country: None (occurrence: None)
  Receive Date: 20120330
  Receipt Date: 20120330
  Transmission Date: 20120608
  Serious: No
  Sender: FDA-Public Use
  Company Number: US-BAYER-2012-031198

PATIENT
  Age: 50 Year
  Sex: Female
  Weight: 66 kg

DRUGS (7)
  1. BETASERON [Suspect]
     Dosage: 0.25 MG, UNK
     Route: 058
  2. ADVAIR DISKUS 100/50 [Concomitant]
     Dosage: 250/50 UNK, UNK
  3. SERTRALINE HYDROCHLORIDE [Concomitant]
     Dosage: 25 MG, UNK
     Route: 048
  4. ASTEPRO [Concomitant]
     Dosage: 0.15%, UNK
  5. TOPAMAX [Concomitant]
     Dosage: 25 MG, UNK
     Route: 048
  6. DICLOFENAC SODIUM [Concomitant]
     Dosage: 25 MG DR, UNK
     Route: 048
  7. ZYRTEC [Concomitant]
     Dosage: 5 MG, UNK
     Route: 048

REACTIONS (1)
  - ANAEMIA [None]
